FAERS Safety Report 9335322 (Version 1)
Quarter: 2013Q2

REPORT INFORMATION
  Report Type: Spontaneous
  Country: US (occurrence: US)
  Receive Date: 20130606
  Receipt Date: 20130606
  Transmission Date: 20140414
  Serious: No
  Sender: FDA-Public Use
  Company Number: US-009507513-1306USA000204

PATIENT
  Sex: Female

DRUGS (3)
  1. PEGINTRON [Suspect]
     Indication: HEPATITIS C
     Dosage: 120 MICROGRAM, QW
     Route: 058
     Dates: start: 20130418
  2. AMBIEN [Concomitant]
  3. ZYRTEC [Concomitant]

REACTIONS (2)
  - Adverse reaction [Unknown]
  - Treatment noncompliance [Unknown]
